FAERS Safety Report 12319091 (Version 1)
Quarter: 2016Q2

REPORT INFORMATION
  Report Type: Spontaneous
  Country: IL (occurrence: IL)
  Receive Date: 20160429
  Receipt Date: 20160429
  Transmission Date: 20160815
  Serious: Yes (Other)
  Sender: FDA-Public Use
  Company Number: IL-JNJFOC-20160423136

PATIENT
  Age: 90 Year
  Sex: Female

DRUGS (2)
  1. XARELTO [Suspect]
     Active Substance: RIVAROXABAN
     Indication: ATRIAL FIBRILLATION
     Route: 048
  2. XARELTO [Suspect]
     Active Substance: RIVAROXABAN
     Indication: CEREBROVASCULAR ACCIDENT PROPHYLAXIS
     Route: 048

REACTIONS (3)
  - Epistaxis [Recovered/Resolved]
  - Renal impairment [Unknown]
  - Epistaxis [Unknown]
